FAERS Safety Report 17550747 (Version 1)
Quarter: 2020Q1

REPORT INFORMATION
  Report Type: Spontaneous
  Country: GB (occurrence: GB)
  Receive Date: 20200317
  Receipt Date: 20200317
  Transmission Date: 20200409
  Serious: Yes (Other)
  Sender: FDA-Public Use
  Company Number: GB-GLAXOSMITHKLINE-GB2020044055

PATIENT
  Age: 17 Year
  Sex: Male
  Weight: 56 kg

DRUGS (4)
  1. OXYTETRACYCLINE [Concomitant]
     Active Substance: OXYTETRACYCLINE
     Indication: PRODUCT USED FOR UNKNOWN INDICATION
     Dosage: UNK
     Route: 065
  2. SUMATRIPTAN SUCCINATE. [Suspect]
     Active Substance: SUMATRIPTAN SUCCINATE
     Indication: MIGRAINE WITH AURA
     Dosage: 50 MG UNK
     Route: 048
     Dates: start: 20200225, end: 20200225
  3. LYMECYCLINE [Concomitant]
     Active Substance: LYMECYCLINE
     Indication: PRODUCT USED FOR UNKNOWN INDICATION
     Dosage: UNK
     Route: 065
  4. FEXOFENADINE HYDROCHLORIDE. [Concomitant]
     Active Substance: FEXOFENADINE HYDROCHLORIDE
     Indication: PRODUCT USED FOR UNKNOWN INDICATION
     Dosage: UNK
     Route: 065

REACTIONS (7)
  - Feeling abnormal [Not Recovered/Not Resolved]
  - Nausea [Recovered/Resolved]
  - Limb discomfort [Recovered/Resolved]
  - Tension headache [Not Recovered/Not Resolved]
  - Confusional state [Recovered/Resolved]
  - Lethargy [Recovered/Resolved]
  - Head discomfort [Recovered/Resolved]

NARRATIVE: CASE EVENT DATE: 20200225
